FAERS Safety Report 16423217 (Version 3)
Quarter: 2019Q3

REPORT INFORMATION
  Report Type: Spontaneous
  Country: US (occurrence: US)
  Receive Date: 20190612
  Receipt Date: 20190802
  Transmission Date: 20191004
  Serious: Yes (Death, Hospitalization)
  Sender: FDA-Public Use
  Company Number: US-B.I. PHARMACEUTICALS,INC./RIDGEFIELD-2019-BI-025947

PATIENT
  Age: 68 Year
  Sex: Male

DRUGS (2)
  1. GILOTRIF [Suspect]
     Active Substance: AFATINIB
     Indication: NON-SMALL CELL LUNG CANCER METASTATIC
     Dosage: 1 TABLET 1 TIME DAILY;  FORM STRENGTH: 30 MG; FORMULATION: TABLET
     Route: 048
     Dates: start: 201810, end: 201903
  2. LOVENOX [Concomitant]
     Active Substance: ENOXAPARIN SODIUM
     Indication: PRODUCT USED FOR UNKNOWN INDICATION
     Route: 065

REACTIONS (9)
  - Localised oedema [Unknown]
  - Haematuria [Recovered/Resolved]
  - Renal pain [Unknown]
  - Venous thrombosis [Unknown]
  - Device dislocation [Unknown]
  - Death [Fatal]
  - Vascular occlusion [Unknown]
  - Venous thrombosis [Recovered/Resolved]
  - Arterial haemorrhage [Unknown]

NARRATIVE: CASE EVENT DATE: 201903
